FAERS Safety Report 17072089 (Version 1)
Quarter: 2019Q4

REPORT INFORMATION
  Report Type: Spontaneous
  Country: US (occurrence: US)
  Receive Date: 20191123
  Receipt Date: 20191123
  Transmission Date: 20200122
  Serious: Yes (Death, Disabling)
  Sender: FDA-Public Use
  Company Number: None

PATIENT
  Age: 60 Year
  Sex: Female

DRUGS (1)
  1. XANAX [Suspect]
     Active Substance: ALPRAZOLAM
     Dosage: ?          QUANTITY:3 TABLET(S);?
     Route: 048
     Dates: start: 20180910, end: 20190709

REACTIONS (4)
  - Drug ineffective [None]
  - Insomnia [None]
  - Agitation [None]
  - Drug monitoring procedure not performed [None]

NARRATIVE: CASE EVENT DATE: 20181120
